FAERS Safety Report 9574887 (Version 1)
Quarter: 2013Q4

REPORT INFORMATION
  Report Type: Spontaneous
  Country: GB (occurrence: GB)
  Receive Date: 20131001
  Receipt Date: 20131001
  Transmission Date: 20140711
  Serious: Yes (Congenital Anomaly)
  Sender: FDA-Public Use
  Company Number: GB-MYLANLABS-2013S1021051

PATIENT
  Sex: Female
  Weight: 10 kg

DRUGS (1)
  1. LEVETIRACETAM [Suspect]
     Route: 064

REACTIONS (3)
  - Cerebral cyst [Unknown]
  - Periventricular nodular heterotopia [Unknown]
  - Exposure during pregnancy [Unknown]
